FAERS Safety Report 23852903 (Version 2)
Quarter: 2024Q2

REPORT INFORMATION
  Report Type: Spontaneous
  Country: US (occurrence: US)
  Receive Date: 20240514
  Receipt Date: 20240531
  Transmission Date: 20240715
  Serious: No
  Sender: FDA-Public Use
  Company Number: US-JNJFOC-20240513796

PATIENT
  Age: 80 Year
  Sex: Female

DRUGS (6)
  1. TYLENOL [Suspect]
     Active Substance: ACETAMINOPHEN
     Indication: Headache
     Route: 065
     Dates: start: 2024
  2. TREPROSTINIL DIOLAMINE [Concomitant]
     Active Substance: TREPROSTINIL DIOLAMINE
     Indication: Pulmonary arterial hypertension
     Route: 048
     Dates: start: 202209
  3. TREPROSTINIL DIOLAMINE [Concomitant]
     Active Substance: TREPROSTINIL DIOLAMINE
     Route: 048
  4. TREPROSTINIL DIOLAMINE [Concomitant]
     Active Substance: TREPROSTINIL DIOLAMINE
     Route: 048
  5. TREPROSTINIL DIOLAMINE [Concomitant]
     Active Substance: TREPROSTINIL DIOLAMINE
     Route: 048
  6. TREPROSTINIL DIOLAMINE [Concomitant]
     Active Substance: TREPROSTINIL DIOLAMINE
     Dosage: 1 TABLET OF 2.5 MG AND 0.125 MG EACH AND 3 TABLETS OF 0.25 MG
     Route: 048

REACTIONS (1)
  - Therapeutic product effect variable [Unknown]

NARRATIVE: CASE EVENT DATE: 20240101
